FAERS Safety Report 17196689 (Version 2)
Quarter: 2020Q1

REPORT INFORMATION
  Report Type: Spontaneous
  Country: JP (occurrence: JP)
  Receive Date: 20191224
  Receipt Date: 20200114
  Transmission Date: 20200409
  Serious: Yes (Other)
  Sender: FDA-Public Use
  Company Number: JP-OTSUKA-2019_042533

PATIENT
  Age: 90 Year
  Sex: Female

DRUGS (5)
  1. SAMSCA [Suspect]
     Active Substance: TOLVAPTAN
     Indication: CARDIAC FAILURE
     Dosage: UNK
     Route: 048
  2. ALDACTONE [Concomitant]
     Active Substance: SPIRONOLACTONE
     Dosage: UNK (INCREASED DOSE)
     Route: 065
  3. ALDACTONE [Concomitant]
     Active Substance: SPIRONOLACTONE
     Indication: PRODUCT USED FOR UNKNOWN INDICATION
     Dosage: UNK
     Route: 065
  4. LASIX [Concomitant]
     Active Substance: FUROSEMIDE
     Indication: PRODUCT USED FOR UNKNOWN INDICATION
     Dosage: UNK
     Route: 065
  5. LASIX [Concomitant]
     Active Substance: FUROSEMIDE
     Dosage: UNK (INCREASED DOSE)
     Route: 065

REACTIONS (1)
  - Pulmonary oedema [Unknown]
